FAERS Safety Report 4942823-6 (Version None)
Quarter: 2006Q1

REPORT INFORMATION
  Report Type: 
  Country: None (occurrence: None)
  Receive Date: 20060314
  Receipt Date: 20060303
  Transmission Date: 20060701
  Serious: Yes (Other)
  Sender: FDA-Public Use
  Company Number: PHEH2006US02951

PATIENT
  Sex: Female

DRUGS (4)
  1. EXELON [Suspect]
     Dates: start: 20050501
  2. EFFEXOR [Concomitant]
  3. TRAZODONE [Concomitant]
  4. ESTROGEN NOS [Concomitant]

REACTIONS (1)
  - WEIGHT INCREASED [None]
